FAERS Safety Report 26198341 (Version 1)
Quarter: 2025Q4

REPORT INFORMATION
  Report Type: Spontaneous
  Country: US (occurrence: US)
  Receive Date: 20251224
  Receipt Date: 20251224
  Transmission Date: 20260117
  Serious: Yes (Life-Threatening, Hospitalization)
  Sender: PFIZER
  Company Number: US-MLMSERVICE-20251201-PI732579-00060-1

PATIENT
  Age: 9 Year
  Sex: Female

DRUGS (3)
  1. AZITHROMYCIN [Suspect]
     Active Substance: AZITHROMYCIN
     Indication: Evidence based treatment
     Dosage: UNK
  2. AZITHROMYCIN [Suspect]
     Active Substance: AZITHROMYCIN
     Indication: Mycoplasma test positive
  3. POLYMYXIN [Concomitant]
     Active Substance: POLYMYXIN
     Indication: Conjunctivitis
     Dosage: UNK (DROPS FOR CONJUNCTIVAL INFECTION BILATERALLY)

REACTIONS (2)
  - Drug ineffective [Recovered/Resolved]
  - Pathogen resistance [Recovered/Resolved]
